FAERS Safety Report 9985376 (Version 1)
Quarter: 2014Q1

REPORT INFORMATION
  Report Type: Report from Study
  Country: US (occurrence: US)
  Receive Date: 20140307
  Receipt Date: 20140307
  Transmission Date: 20141002
  Serious: No
  Sender: FDA-Public Use
  Company Number: US-ABBVIE-14P-163-1185973-00

PATIENT
  Age: 44 Year
  Sex: Male

DRUGS (5)
  1. HUMIRA [Suspect]
     Indication: ANKYLOSING SPONDYLITIS
     Dates: start: 200701
  2. HUMIRA [Suspect]
     Dates: end: 20130628
  3. HUMIRA [Suspect]
     Dates: start: 201312
  4. VALTREX [Concomitant]
     Indication: HERPES VIRUS INFECTION
  5. RABIES VACCIN [Concomitant]
     Indication: PRODUCT USED FOR UNKNOWN INDICATION
     Dates: end: 201311

REACTIONS (4)
  - Local swelling [Not Recovered/Not Resolved]
  - Inappropriate schedule of drug administration [Unknown]
  - Joint swelling [Not Recovered/Not Resolved]
  - Eye infection [Not Recovered/Not Resolved]
